FAERS Safety Report 4428880-4 (Version None)
Quarter: 2004Q3

REPORT INFORMATION
  Report Type: 
  Country: None (occurrence: None)
  Receive Date: 20040817
  Receipt Date: 20040723
  Transmission Date: 20050211
  Serious: Yes (Hospitalization)
  Sender: FDA-Public Use
  Company Number: 20040700347

PATIENT
  Age: 79 Year
  Sex: Female
  Weight: 81.6475 kg

DRUGS (11)
  1. PHENERGAN [Suspect]
     Dates: start: 20040712, end: 20040712
  2. PREVACID [Concomitant]
  3. POTASSIUM [Concomitant]
  4. FUROSEMIDE [Concomitant]
  5. LIPITOR [Concomitant]
  6. AVANDIA [Concomitant]
  7. ARICWEPT (DONEPEZIL HYDROCHLORIDE) [Concomitant]
  8. DETROL [Concomitant]
  9. ALBUTEROL [Concomitant]
  10. VITAMIN E [Concomitant]
  11. CALCIUM [Concomitant]

REACTIONS (6)
  - ABNORMAL BEHAVIOUR [None]
  - AGGRESSION [None]
  - AGITATION [None]
  - CONDITION AGGRAVATED [None]
  - DEMENTIA [None]
  - SCREAMING [None]
